FAERS Safety Report 10233168 (Version 1)
Quarter: 2014Q2

REPORT INFORMATION
  Report Type: Spontaneous
  Country: US (occurrence: None)
  Receive Date: 20140611
  Receipt Date: 20140611
  Transmission Date: 20141212
  Serious: Yes (Hospitalization)
  Sender: FDA-Public Use
  Company Number: None

PATIENT
  Age: 15 Year
  Sex: Male
  Weight: 88 kg

DRUGS (5)
  1. CYTARABINE [Suspect]
     Dates: start: 20140509
  2. DAUNORUBICIN [Suspect]
     Dates: start: 20140516
  3. PEGASPARAGINASE [Suspect]
     Dates: start: 20140513
  4. PREDNISONE [Suspect]
     Dates: start: 20140519
  5. VINCRISTINE SULFATE [Suspect]
     Dates: start: 20140516

REACTIONS (14)
  - Chest pain [None]
  - Dyspnoea [None]
  - Electrocardiogram ST segment elevation [None]
  - Pericardial effusion [None]
  - Respiratory distress [None]
  - Hypotension [None]
  - Lactic acidosis [None]
  - Pulmonary oedema [None]
  - Multi-organ disorder [None]
  - Blood triglycerides increased [None]
  - Enterovirus test positive [None]
  - Gamma-glutamyltransferase increased [None]
  - Transaminases increased [None]
  - Viral test [None]
